FAERS Safety Report 8783331 (Version 1)
Quarter: 2012Q4

REPORT INFORMATION
  Report Type: Report from Study
  Country: US (occurrence: US)
  Receive Date: 20120913
  Receipt Date: 20120913
  Transmission Date: 20130627
  Serious: No
  Sender: FDA-Public Use
  Company Number: US-VERTEX PHARMACEUTICAL INC.-AE-2012-008982

PATIENT
  Sex: Female

DRUGS (9)
  1. INCIVEK [Suspect]
     Indication: HEPATITIS C
     Route: 048
  2. SPIRIVA [Concomitant]
  3. ADVAIR HFA AER 230/21 [Concomitant]
  4. SINGULAIR [Concomitant]
  5. PLAVIX [Concomitant]
  6. VENTOLIN HFA AER [Concomitant]
  7. RANITIDINE [Concomitant]
  8. PROZAC [Concomitant]
  9. AMBIEN [Concomitant]

REACTIONS (3)
  - Insomnia [Unknown]
  - Anal pruritus [Unknown]
  - Anorectal discomfort [Unknown]
